FAERS Safety Report 8614510-4 (Version None)
Quarter: 2012Q3

REPORT INFORMATION
  Report Type: 
  Country: None (occurrence: None)
  Receive Date: 20120823
  Receipt Date: 20120821
  Transmission Date: 20120928
  Serious: Yes (Death, Hospitalization, Other)
  Sender: FDA-Public Use
  Company Number: PHHY2012AR071242

PATIENT
  Sex: Female
  Weight: 71 kg

DRUGS (1)
  1. DIOVAN [Suspect]
     Dosage: 160 MG, DAILY
     Dates: end: 20120721

REACTIONS (8)
  - SCLERODERMA [None]
  - CARDIOGENIC SHOCK [None]
  - PNEUMONIA [None]
  - MUSCLE SPASMS [None]
  - VASCULITIS [None]
  - LOSS OF CONSCIOUSNESS [None]
  - BLOOD PRESSURE DECREASED [None]
  - PAIN IN EXTREMITY [None]
